FAERS Safety Report 15813123 (Version 1)
Quarter: 2019Q1

REPORT INFORMATION
  Report Type: Spontaneous
  Country: US (occurrence: US)
  Receive Date: 20190111
  Receipt Date: 20190111
  Transmission Date: 20190417
  Serious: No
  Sender: FDA-Public Use
  Company Number: US-SA-2019SA005805

PATIENT
  Age: 39 Year
  Sex: Female

DRUGS (1)
  1. ALLEGRA ALLERGY [Suspect]
     Active Substance: FEXOFENADINE HYDROCHLORIDE
     Indication: DUST ALLERGY
     Dosage: 180 MG, QD

REACTIONS (3)
  - Erythema [Unknown]
  - Pruritus [Unknown]
  - Rash [Unknown]
